FAERS Safety Report 11593145 (Version 2)
Quarter: 2016Q1

REPORT INFORMATION
  Report Type: Report from Study
  Country: US (occurrence: US)
  Receive Date: 20151005
  Receipt Date: 20160114
  Transmission Date: 20160525
  Serious: No
  Sender: FDA-Public Use
  Company Number: US-ARIAD PHARMACEUTICALS, INC-2014US003594

PATIENT
  Sex: Female

DRUGS (1)
  1. ICLUSIG [Suspect]
     Active Substance: PONATINIB
     Indication: CHRONIC MYELOID LEUKAEMIA
     Dosage: 30 MG, QD
     Route: 048
     Dates: start: 20140520

REACTIONS (19)
  - Eye pain [Not Recovered/Not Resolved]
  - Abdominal pain [Recovered/Resolved]
  - Weight increased [Unknown]
  - Abdominal discomfort [Not Recovered/Not Resolved]
  - Arthralgia [Unknown]
  - Dyspnoea exertional [Unknown]
  - Eyelid pain [Recovered/Resolved]
  - Depression [Unknown]
  - Eyelid disorder [Recovered/Resolved]
  - Hyperhidrosis [Not Recovered/Not Resolved]
  - Back pain [Unknown]
  - Foreign body sensation in eyes [Recovered/Resolved]
  - Migraine [Unknown]
  - Headache [Not Recovered/Not Resolved]
  - Chest discomfort [Unknown]
  - Abdominal pain upper [Unknown]
  - Palpitations [Unknown]
  - Decreased appetite [Unknown]
  - Upper respiratory tract infection [Unknown]
